FAERS Safety Report 23420982 (Version 1)
Quarter: 2024Q1

REPORT INFORMATION
  Report Type: Spontaneous
  Country: CN (occurrence: CN)
  Receive Date: 20240119
  Receipt Date: 20240119
  Transmission Date: 20240410
  Serious: Yes (Other)
  Sender: FDA-Public Use
  Company Number: CN-MLMSERVICE-2024010347564501

PATIENT
  Age: 77 Year
  Sex: Male

DRUGS (4)
  1. FLUOROURACIL [Suspect]
     Active Substance: FLUOROURACIL
     Indication: Small intestine adenocarcinoma
     Dosage: 400 MG/M2  EVERY 2 WEEKS FOR 9 CYCLES INTRAVENOUS BOLUS
     Dates: start: 2021
  2. OXALIPLATIN [Suspect]
     Active Substance: OXALIPLATIN
     Indication: Small intestine adenocarcinoma
     Dosage: 85 MG/M2 ON DAY 2 EVERY 2 WEEKS FOR 9 CYCLES
     Dates: start: 2021
  3. LEUCOVORIN [Suspect]
     Active Substance: LEUCOVORIN\LEUCOVORIN CALCIUM
     Indication: Small intestine adenocarcinoma
     Dosage: 400 MG/M2 ON DAY 2 EVERY 2 WEEKS FOR 9 CYCLES
     Dates: start: 2021
  4. TRASTUZUMAB [Suspect]
     Active Substance: TRASTUZUMAB
     Indication: Small intestine adenocarcinoma
     Dosage: 4 MG/KG ON DAY 1 EVERY 2 WEEKS FOR 9 CYCLES
     Dates: start: 2021

REACTIONS (1)
  - Neurotoxicity [Unknown]
